FAERS Safety Report 8881281 (Version 2)
Quarter: 2012Q4

REPORT INFORMATION
  Report Type: 
  Country: BR (occurrence: BR)
  Receive Date: 20121031
  Receipt Date: 20121122
  Transmission Date: 20130627
  Serious: Yes (Other)
  Sender: FDA-Public Use
  Company Number: BR-JNJFOC-20121014940

PATIENT
  Age: 80 Year
  Sex: Female
  Weight: 73 kg

DRUGS (2)
  1. XARELTO [Suspect]
     Indication: EMBOLISM VENOUS
     Route: 048
  2. XARELTO [Suspect]
     Indication: DEEP VEIN THROMBOSIS
     Route: 048

REACTIONS (3)
  - Pulmonary embolism [Recovering/Resolving]
  - Fibrin D dimer increased [Unknown]
  - Drug ineffective [Unknown]
